FAERS Safety Report 17682229 (Version 1)
Quarter: 2020Q2

REPORT INFORMATION
  Report Type: Spontaneous
  Country: ES (occurrence: ES)
  Receive Date: 20200418
  Receipt Date: 20200418
  Transmission Date: 20200714
  Serious: Yes (Hospitalization, Other)
  Sender: FDA-Public Use
  Company Number: ES-AUROBINDO-AUR-APL-2020-019071

PATIENT
  Age: 65 Year
  Sex: Female

DRUGS (3)
  1. PIPERACILLIN+TAZOBACTAM 4/0.5G POWDERFORSOLUTIONFORINFUSION [Suspect]
     Active Substance: PIPERACILLIN SODIUM\TAZOBACTAM SODIUM
     Indication: INFECTION
     Dosage: 4 GRAM, 3 TIMES A DAY
     Route: 042
     Dates: start: 20200118, end: 20200127
  2. FUROSEMIDE. [Suspect]
     Active Substance: FUROSEMIDE
     Indication: OEDEMA
     Dosage: UNK
     Route: 042
     Dates: start: 20191222, end: 20200129
  3. METAMIZOLE [Suspect]
     Active Substance: METAMIZOLE
     Indication: PAIN
     Dosage: 1 GRAM, 3 TIMES A DAY
     Route: 042
     Dates: start: 20191222, end: 20200129

REACTIONS (2)
  - Hepatitis [Recovered/Resolved]
  - Drug reaction with eosinophilia and systemic symptoms [Recovered/Resolved]

NARRATIVE: CASE EVENT DATE: 20200127
